FAERS Safety Report 19516853 (Version 1)
Quarter: 2021Q3

REPORT INFORMATION
  Report Type: Spontaneous
  Country: US (occurrence: US)
  Receive Date: 20210711
  Receipt Date: 20210711
  Transmission Date: 20211014
  Serious: No
  Sender: FDA-Public Use
  Company Number: US-ORGANON-O2106USA001647

PATIENT
  Age: 18 Year
  Sex: Male

DRUGS (4)
  1. COZAAR [Suspect]
     Active Substance: LOSARTAN POTASSIUM
     Indication: GLOMERULONEPHRITIS MEMBRANOPROLIFERATIVE
     Dosage: UNK
     Route: 048
  2. COZAAR [Suspect]
     Active Substance: LOSARTAN POTASSIUM
     Indication: CHRONIC KIDNEY DISEASE
  3. PREDNISONE. [Concomitant]
     Active Substance: PREDNISONE
     Dosage: UNK
     Route: 048
  4. ECULIZUMAB [Concomitant]
     Active Substance: ECULIZUMAB
     Indication: PROTEINURIA
     Dosage: 900 MILLIGRAM, QW
     Route: 042

REACTIONS (1)
  - Product use in unapproved indication [Unknown]
